FAERS Safety Report 25467909 (Version 1)
Quarter: 2025Q2

REPORT INFORMATION
  Report Type: Other
  Country: DE (occurrence: DE)
  Receive Date: 20250623
  Receipt Date: 20250623
  Transmission Date: 20250717
  Serious: Yes (Other)
  Sender: ANI
  Company Number: DE-ANIPHARMA-023239

PATIENT
  Age: 47 Year
  Sex: Female

DRUGS (5)
  1. LEUCOVORIN [Suspect]
     Active Substance: LEUCOVORIN\LEUCOVORIN CALCIUM
     Indication: Colon cancer
  2. OXALIPLATIN [Concomitant]
     Active Substance: OXALIPLATIN
     Indication: Colon cancer
  3. IRINOTECAN [Concomitant]
     Active Substance: IRINOTECAN
     Indication: Colon cancer
  4. FLUOROURACIL [Concomitant]
     Active Substance: FLUOROURACIL
     Indication: Colon cancer
  5. BEVACIZUMAB [Concomitant]
     Active Substance: BEVACIZUMAB
     Indication: Colon cancer

REACTIONS (1)
  - Device related thrombosis [Unknown]
